FAERS Safety Report 7351119-7 (Version None)
Quarter: 2011Q1

REPORT INFORMATION
  Report Type: 
  Country: None (occurrence: None)
  Receive Date: 20110314
  Receipt Date: 20110303
  Transmission Date: 20110831
  Serious: Yes (Hospitalization, Other)
  Sender: FDA-Public Use
  Company Number: CA-JNJFOC-20100906521

PATIENT
  Sex: Female
  Weight: 68.04 kg

DRUGS (15)
  1. FUROSEMIDE [Concomitant]
     Indication: CARDIAC FAILURE CONGESTIVE
  2. DILAUDID [Concomitant]
     Indication: PAIN
  3. BRIMONIDINE [Concomitant]
     Indication: PAIN
  4. OXAZEPAM [Concomitant]
  5. SYNTHROID [Concomitant]
     Indication: HYPERTHYROIDISM
  6. CRESTOR [Concomitant]
     Indication: HYPERLIPIDAEMIA
  7. VITAMIN D [Concomitant]
  8. STELARA [Suspect]
     Indication: PSORIASIS
     Route: 058
  9. PAROXETINE [Concomitant]
     Indication: HYPERTENSION
  10. HYDROMORPHONE HCL [Concomitant]
     Indication: PAIN
  11. ALDACTONE [Concomitant]
  12. IMDUR [Concomitant]
     Indication: HYPERTENSION
  13. PANTOLOC [Concomitant]
  14. DILTIAZEM [Concomitant]
     Indication: HYPERTENSION
  15. FOLIC ACID [Concomitant]
     Indication: HYPERTENSION

REACTIONS (3)
  - CARDIAC FAILURE CONGESTIVE [None]
  - RENAL DISORDER [None]
  - PNEUMONIA [None]
